FAERS Safety Report 14732174 (Version 1)
Quarter: 2018Q2

REPORT INFORMATION
  Report Type: Spontaneous
  Country: US (occurrence: US)
  Receive Date: 20180409
  Receipt Date: 20180409
  Transmission Date: 20180711
  Serious: Yes (Other)
  Sender: FDA-Public Use
  Company Number: US-ROCHE-2101148

PATIENT
  Age: 89 Year
  Sex: Female
  Weight: 64.47 kg

DRUGS (1)
  1. ESBRIET [Suspect]
     Active Substance: PIRFENIDONE
     Indication: IDIOPATHIC PULMONARY FIBROSIS
     Route: 048
     Dates: start: 20171013, end: 201801

REACTIONS (5)
  - Vision blurred [Unknown]
  - Dyspnoea [Unknown]
  - Dizziness [Unknown]
  - Respiratory arrest [Unknown]
  - Balance disorder [Unknown]

NARRATIVE: CASE EVENT DATE: 201801
